FAERS Safety Report 23096810 (Version 1)
Quarter: 2023Q4

REPORT INFORMATION
  Report Type: Other
  Country: CA (occurrence: CA)
  Receive Date: 20231023
  Receipt Date: 20231023
  Transmission Date: 20240109
  Serious: Yes (Other)
  Sender: FDA-Public Use
  Company Number: CA-APOTEX-2023AP015455

PATIENT
  Age: 19 Year
  Sex: Female
  Weight: 114 kg

DRUGS (2)
  1. DEXAMETHASONE [Suspect]
     Active Substance: DEXAMETHASONE
     Indication: COVID-19
     Dosage: UNK
     Route: 065
  2. REMICADE [Suspect]
     Active Substance: INFLIXIMAB
     Indication: Crohn^s disease
     Dosage: 600 MILLIGRAM 1 EVERY 4 WEEKS
     Route: 041

REACTIONS (2)
  - COVID-19 [Not Recovered/Not Resolved]
  - Cystitis [Not Recovered/Not Resolved]
